FAERS Safety Report 23574943 (Version 1)
Quarter: 2024Q1

REPORT INFORMATION
  Report Type: Spontaneous
  Country: PL (occurrence: PL)
  Receive Date: 20240228
  Receipt Date: 20240228
  Transmission Date: 20240410
  Serious: Yes (Other)
  Sender: FDA-Public Use
  Company Number: None

PATIENT
  Age: 42 Year
  Sex: Female
  Weight: 78 kg

DRUGS (2)
  1. LEVOFLOXACIN [Suspect]
     Active Substance: LEVOFLOXACIN
     Indication: Groin abscess
     Dosage: EXPIRATION DATE: 2025-01-01
     Route: 048
     Dates: start: 20230920, end: 20230921
  2. LEVOFLOXACIN [Suspect]
     Active Substance: LEVOFLOXACIN
     Indication: Groin abscess
     Dosage: EXPIRATION DATE: 2025-01-01
     Route: 048
     Dates: start: 20230921, end: 20230925

REACTIONS (7)
  - Gait disturbance [Unknown]
  - Stenotrophomonas test positive [Unknown]
  - Pain in extremity [Not Recovered/Not Resolved]
  - Loss of personal independence in daily activities [Unknown]
  - Abdominal pain [Recovered/Resolved]
  - Tendon pain [Not Recovered/Not Resolved]
  - Arthralgia [Recovered/Resolved]

NARRATIVE: CASE EVENT DATE: 20230923
